FAERS Safety Report 15282803 (Version 2)
Quarter: 2018Q4

REPORT INFORMATION
  Report Type: Report from Study
  Country: GR (occurrence: GR)
  Receive Date: 20180816
  Receipt Date: 20181002
  Transmission Date: 20190204
  Serious: Yes (Hospitalization)
  Sender: FDA-Public Use
  Company Number: GR-ROCHE-2168795

PATIENT
  Sex: Female

DRUGS (2)
  1. ESBRIET [Suspect]
     Active Substance: PIRFENIDONE
     Indication: PULMONARY FIBROSIS
     Dosage: THREE TWICE A DAY.
     Route: 048
     Dates: start: 201610
  2. ESBRIET [Suspect]
     Active Substance: PIRFENIDONE
     Dosage: THREE TIME A DAY
     Route: 048
     Dates: start: 20180829

REACTIONS (3)
  - Oral disorder [Recovered/Resolved]
  - Pulmonary fibrosis [Recovered/Resolved]
  - Dyspnoea [Not Recovered/Not Resolved]

NARRATIVE: CASE EVENT DATE: 201807
